FAERS Safety Report 16107917 (Version 3)
Quarter: 2019Q2

REPORT INFORMATION
  Report Type: Spontaneous
  Country: ES (occurrence: ES)
  Receive Date: 20190322
  Receipt Date: 20190522
  Transmission Date: 20190711
  Serious: Yes (Other)
  Sender: FDA-Public Use
  Company Number: ES-GILEAD-2019-0396594

PATIENT
  Age: 17 Year
  Sex: Male
  Weight: 70 kg

DRUGS (12)
  1. TENOFOVIR DISOPROXIL FUMARATE. [Suspect]
     Active Substance: TENOFOVIR DISOPROXIL FUMARATE
     Indication: CHRONIC HEPATITIS B
     Dosage: 245 MG, Q1WK
     Route: 065
     Dates: start: 201411
  2. CELLCEPT [Concomitant]
     Active Substance: MYCOPHENOLATE MOFETIL\MYCOPHENOLATE MOFETIL HYDROCHLORIDE
  3. VITAMIN D [COLECALCIFEROL] [Concomitant]
     Active Substance: CHOLECALCIFEROL
  4. ARANESP [Concomitant]
     Active Substance: DARBEPOETIN ALFA
  5. TENOFOVIR DISOPROXIL FUMARATE. [Suspect]
     Active Substance: TENOFOVIR DISOPROXIL FUMARATE
     Dosage: 245 MG, QOD
     Route: 065
     Dates: start: 201807
  6. TENOFOVIR DISOPROXIL FUMARATE. [Suspect]
     Active Substance: TENOFOVIR DISOPROXIL FUMARATE
     Dosage: 245 MG, Q4DAYS
     Route: 065
     Dates: start: 201902
  7. TENOFOVIR DISOPROXIL FUMARATE. [Suspect]
     Active Substance: TENOFOVIR DISOPROXIL FUMARATE
     Dosage: UNK
     Route: 065
     Dates: start: 201905
  8. TENOFOVIR DISOPROXIL FUMARATE. [Suspect]
     Active Substance: TENOFOVIR DISOPROXIL FUMARATE
     Dosage: 245 MG, QD
     Route: 065
     Dates: start: 201511
  9. PREDNISONE. [Concomitant]
     Active Substance: PREDNISONE
  10. BICARBONATE [Concomitant]
     Active Substance: SODIUM BICARBONATE
  11. ENALAPRIL [Concomitant]
     Active Substance: ENALAPRIL
     Dosage: UNK
     Dates: start: 201808, end: 201812
  12. CYCLOSPORIN A [Concomitant]
     Active Substance: CYCLOSPORINE
     Dosage: 15 UNK, QD
     Dates: start: 201801

REACTIONS (9)
  - Treatment noncompliance [Unknown]
  - Renal transplant [Recovered/Resolved]
  - Single functional kidney [Not Recovered/Not Resolved]
  - Shock haemorrhagic [Recovered/Resolved]
  - Gastrointestinal haemorrhage [Unknown]
  - Helicobacter duodenal ulcer [Unknown]
  - Renal tubular injury [Unknown]
  - Glomerular filtration rate decreased [Unknown]
  - Renal tubular disorder [Unknown]

NARRATIVE: CASE EVENT DATE: 201511
